FAERS Safety Report 13496988 (Version 2)
Quarter: 2017Q2

REPORT INFORMATION
  Report Type: Spontaneous
  Country: US (occurrence: US)
  Receive Date: 20170428
  Receipt Date: 20170512
  Transmission Date: 20170830
  Serious: Yes (Hospitalization)
  Sender: FDA-Public Use
  Company Number: US-INDIVIOR LIMITED-INDV-100739-2017

PATIENT
  Age: 28 Year
  Sex: Female

DRUGS (3)
  1. HEROIN [Suspect]
     Active Substance: DIAMORPHINE
     Indication: PRODUCT USED FOR UNKNOWN INDICATION
     Dosage: UNK, APPROXMATELY 4 TO 5 BAGS PER DAY
     Route: 013
  2. BUPRENORPHINE. [Suspect]
     Active Substance: BUPRENORPHINE
     Indication: DRUG USE DISORDER
     Dosage: UNK
     Route: 065
  3. BUPRENORPHINE. [Suspect]
     Active Substance: BUPRENORPHINE
     Dosage: UPTO 20 MG/DAY
     Route: 065

REACTIONS (3)
  - Arterial occlusive disease [Unknown]
  - Injection site ischaemia [Unknown]
  - Drug use disorder [Unknown]
